FAERS Safety Report 19977092 (Version 4)
Quarter: 2021Q4

REPORT INFORMATION
  Report Type: Spontaneous
  Country: US (occurrence: US)
  Receive Date: 20211020
  Receipt Date: 20211101
  Transmission Date: 20220304
  Serious: No
  Sender: FDA-Public Use
  Company Number: US-AMGEN-USASP2021159472

PATIENT
  Age: 79 Year
  Sex: Male
  Weight: 80.5 kg

DRUGS (2)
  1. NEULASTA [Suspect]
     Active Substance: PEGFILGRASTIM
     Indication: Neutropenia
     Dosage: UNK
     Route: 065
     Dates: start: 20211012
  2. NEULASTA [Suspect]
     Active Substance: PEGFILGRASTIM
     Dosage: UNK
     Route: 065
     Dates: start: 20211012

REACTIONS (1)
  - Device occlusion [Unknown]

NARRATIVE: CASE EVENT DATE: 20211012
